FAERS Safety Report 5503193-8 (Version None)
Quarter: 2007Q4

REPORT INFORMATION
  Report Type: 
  Country: None (occurrence: None)
  Receive Date: 20071031
  Receipt Date: 20071022
  Transmission Date: 20080405
  Serious: Yes (Hospitalization)
  Sender: FDA-Public Use
  Company Number: US-AMGEN-STX249154

PATIENT
  Sex: Female

DRUGS (1)
  1. ENBREL [Suspect]
     Indication: RHEUMATOID ARTHRITIS
     Route: 058
     Dates: start: 20061120, end: 20070919

REACTIONS (4)
  - DYSPNOEA [None]
  - MYOCARDIAL INFARCTION [None]
  - PNEUMONIA LEGIONELLA [None]
  - RENAL FAILURE [None]
